FAERS Safety Report 16952600 (Version 2)
Quarter: 2020Q1

REPORT INFORMATION
  Report Type: Report from Study
  Country: HK (occurrence: HK)
  Receive Date: 20191023
  Receipt Date: 20200120
  Transmission Date: 20200409
  Serious: Yes (Hospitalization)
  Sender: FDA-Public Use
  Company Number: HK-ROCHE-2442638

PATIENT
  Age: 53 Year
  Sex: Male

DRUGS (9)
  1. CABOZANTINIB [Suspect]
     Active Substance: CABOZANTINIB
     Route: 048
     Dates: start: 20191008
  2. METOPROLOL. [Concomitant]
     Active Substance: METOPROLOL
  3. LOPERAMIDE HCL [Concomitant]
     Active Substance: LOPERAMIDE HYDROCHLORIDE
  4. CHLORPHENIRAMINE MALEATE. [Concomitant]
     Active Substance: CHLORPHENIRAMINE MALEATE
  5. ATEZOLIZUMAB. [Suspect]
     Active Substance: ATEZOLIZUMAB
     Indication: HEPATOCELLULAR CARCINOMA
     Dosage: 18/SEP/2019 MOST RECENT DOSE OF ATEZOLIZUMAB
     Route: 042
     Dates: start: 20190918
  6. SIMVASTATIN. [Concomitant]
     Active Substance: SIMVASTATIN
  7. ENTECAVIR. [Concomitant]
     Active Substance: ENTECAVIR
  8. VITAMIN B6 [Concomitant]
     Active Substance: PYRIDOXINE HYDROCHLORIDE
  9. CABOZANTINIB [Suspect]
     Active Substance: CABOZANTINIB
     Indication: HEPATOCELLULAR CARCINOMA
     Dosage: 02/OCT/2019, HE RECEIVED THE MOST RECENT DOSE OF CABOZANTINIB PRIOR TO THE ONSET OF THE EVENT.
     Route: 048
     Dates: start: 20190918

REACTIONS (1)
  - Pyrexia [Recovered/Resolved]

NARRATIVE: CASE EVENT DATE: 20191002
